FAERS Safety Report 25043401 (Version 1)
Quarter: 2025Q1

REPORT INFORMATION
  Report Type: Report from Study
  Country: CA (occurrence: CA)
  Receive Date: 20250306
  Receipt Date: 20250306
  Transmission Date: 20250409
  Serious: Yes (Other)
  Sender: ABBVIE
  Company Number: CA-ABBVIE-6159592

PATIENT
  Sex: Female

DRUGS (1)
  1. SKYRIZI [Suspect]
     Active Substance: RISANKIZUMAB-RZAA
     Indication: Crohn^s disease
     Route: 042
     Dates: start: 20241113

REACTIONS (4)
  - Dental operation [Not Recovered/Not Resolved]
  - Oral infection [Not Recovered/Not Resolved]
  - Oral pain [Not Recovered/Not Resolved]
  - Oral pustule [Not Recovered/Not Resolved]
